FAERS Safety Report 23500901 (Version 1)
Quarter: 2024Q1

REPORT INFORMATION
  Report Type: Spontaneous
  Country: GB (occurrence: GB)
  Receive Date: 20240208
  Receipt Date: 20240208
  Transmission Date: 20240409
  Serious: Yes (Hospitalization, Other)
  Sender: FDA-Public Use
  Company Number: GB-Hikma Pharmaceuticals-GB-H14001-23-00848

PATIENT
  Age: 30 Year
  Sex: Male
  Weight: 75 kg

DRUGS (5)
  1. CARBOPLATIN [Suspect]
     Active Substance: CARBOPLATIN
     Indication: Anal cancer
     Dosage: AUC 6 ON DAY 1 OF EACH 28-DAY CYCLE
     Route: 042
  2. RETIFANLIMAB [Suspect]
     Active Substance: RETIFANLIMAB
     Indication: Anal cancer
     Dosage: 500 MILLIGRAM, ON DAY 1 OF EACH 28-DAY CYCLE
     Route: 065
     Dates: start: 20230119, end: 20230222
  3. PACLITAXEL [Suspect]
     Active Substance: PACLITAXEL
     Indication: Anal cancer
     Dosage: 80 MILLIGRAM/SQ. METER, ON DAYS 1, 8, AND 15 OF EACH 28-DAY-CYCLE
     Route: 042
     Dates: start: 20230119, end: 20230322
  4. FLUCLOXACILLIN [Concomitant]
     Active Substance: FLUCLOXACILLIN
     Indication: Product used for unknown indication
     Dosage: UNK
     Route: 065
     Dates: start: 20230216
  5. METRONIDAZOLE [Concomitant]
     Active Substance: METRONIDAZOLE
     Indication: Product used for unknown indication
     Dosage: UNK
     Dates: start: 20230216

REACTIONS (8)
  - Wound infection [Recovering/Resolving]
  - Catheter site infection [Recovered/Resolved]
  - Fungating wound [Recovered/Resolved]
  - Anal infection [Recovered/Resolved]
  - Full blood count decreased [Unknown]
  - Acute kidney injury [Unknown]
  - Perineal infection [Recovered/Resolved]
  - Condition aggravated [Recovered/Resolved]

NARRATIVE: CASE EVENT DATE: 20230204
